FAERS Safety Report 13078787 (Version 1)
Quarter: 2017Q1

REPORT INFORMATION
  Report Type: Spontaneous
  Country: FR (occurrence: FR)
  Receive Date: 20170102
  Receipt Date: 20170102
  Transmission Date: 20170428
  Serious: Yes (Death)
  Sender: FDA-Public Use
  Company Number: FR-TEVA-723377ROM

PATIENT
  Age: 103 Year
  Sex: Female

DRUGS (1)
  1. FUROSEMIDE TEVA 500 MG [Suspect]
     Active Substance: FUROSEMIDE

REACTIONS (1)
  - Renal impairment [Fatal]
